FAERS Safety Report 9262723 (Version 2)
Quarter: 2013Q2

REPORT INFORMATION
  Report Type: Spontaneous
  Country: US (occurrence: US)
  Receive Date: 20130430
  Receipt Date: 20130603
  Transmission Date: 20140414
  Serious: No
  Sender: FDA-Public Use
  Company Number: US-PFIZER INC-2013131413

PATIENT
  Age: 9 Year
  Sex: Female
  Weight: 28.12 kg

DRUGS (1)
  1. CHILDRENS ADVIL [Suspect]
     Indication: TOOTHACHE
     Dosage: TWO TEASPOONS, ONCE
     Route: 048
     Dates: start: 20130425, end: 20130425

REACTIONS (2)
  - Abdominal discomfort [Recovering/Resolving]
  - Vomiting [Recovering/Resolving]
